FAERS Safety Report 6847295-2 (Version None)
Quarter: 2010Q3

REPORT INFORMATION
  Report Type: 
  Country: None (occurrence: None)
  Receive Date: 20100716
  Receipt Date: 20100708
  Transmission Date: 20110219
  Serious: Yes (Hospitalization)
  Sender: FDA-Public Use
  Company Number: IT-JNJFOC-20100407817

PATIENT
  Sex: Female

DRUGS (3)
  1. RISPERDAL [Suspect]
     Indication: PSYCHOTIC DISORDER
     Route: 048
  2. LORAZEPAM [Suspect]
     Indication: SELF INJURIOUS BEHAVIOUR
     Route: 048
  3. INTERFERON BETA [Concomitant]
     Indication: PRODUCT USED FOR UNKNOWN INDICATION
     Route: 065

REACTIONS (4)
  - MULTIPLE DRUG OVERDOSE INTENTIONAL [None]
  - SELF INJURIOUS BEHAVIOUR [None]
  - SOPOR [None]
  - SUICIDE ATTEMPT [None]
